FAERS Safety Report 12609677 (Version 1)
Quarter: 2016Q3

REPORT INFORMATION
  Report Type: Report from Study
  Country: GB (occurrence: GB)
  Receive Date: 20160801
  Receipt Date: 20160801
  Transmission Date: 20161109
  Serious: Yes (Other)
  Sender: FDA-Public Use
  Company Number: PHFR2016GB006186

PATIENT
  Age: 48 Year
  Sex: Female

DRUGS (2)
  1. GILENYA [Suspect]
     Active Substance: FINGOLIMOD HYDROCHLORIDE
     Indication: RELAPSING-REMITTING MULTIPLE SCLEROSIS
     Dosage: 0.5 MG, UNK
     Route: 065
     Dates: start: 20150302
  2. VENTOLIN [Concomitant]
     Active Substance: ALBUTEROL SULFATE
     Indication: PRODUCT USED FOR UNKNOWN INDICATION
     Route: 065

REACTIONS (15)
  - Neuritic plaques [Unknown]
  - Blood pressure systolic decreased [Unknown]
  - Anal incontinence [Unknown]
  - Lymphocyte count decreased [Unknown]
  - Limb discomfort [Unknown]
  - Defaecation urgency [Unknown]
  - Demyelination [Unknown]
  - Paraesthesia [Unknown]
  - Micturition urgency [Unknown]
  - Insomnia [Unknown]
  - Urinary incontinence [Unknown]
  - Paraparesis [Unknown]
  - Urinary tract infection [Unknown]
  - Dysuria [Unknown]
  - Mean cell haemoglobin concentration increased [Unknown]

NARRATIVE: CASE EVENT DATE: 20150402
